FAERS Safety Report 15795068 (Version 1)
Quarter: 2019Q1

REPORT INFORMATION
  Report Type: Spontaneous
  Country: US (occurrence: US)
  Receive Date: 20190107
  Receipt Date: 20190107
  Transmission Date: 20190417
  Serious: No
  Sender: FDA-Public Use
  Company Number: US-LEXICON PHARMACEUTICALS, INC-18-1606-01551

PATIENT
  Age: 68 Year
  Sex: Female

DRUGS (1)
  1. TELOTRISTAT ETHYL [Suspect]
     Active Substance: TELOTRISTAT ETHYL
     Indication: CARCINOID SYNDROME
     Route: 048
     Dates: start: 20180926

REACTIONS (3)
  - Dehydration [Not Recovered/Not Resolved]
  - Defaecation urgency [Unknown]
  - Fatigue [Unknown]

NARRATIVE: CASE EVENT DATE: 2018
